FAERS Safety Report 10366228 (Version 1)
Quarter: 2014Q3

REPORT INFORMATION
  Report Type: Spontaneous
  Country: US (occurrence: None)
  Receive Date: 20140805
  Receipt Date: 20140805
  Transmission Date: 20150326
  Serious: Yes (Other)
  Sender: FDA-Public Use
  Company Number: None

PATIENT
  Age: 53 Year
  Sex: Male
  Weight: 92.53 kg

DRUGS (1)
  1. OXYCODONE [Suspect]
     Active Substance: OXYCODONE
     Dosage: ONE AND ONE HALF AS NEEDED TAKEN BY MOUTH
     Route: 048

REACTIONS (2)
  - Product container issue [None]
  - Product sterility lacking [None]

NARRATIVE: CASE EVENT DATE: 20140804
